FAERS Safety Report 6295650-4 (Version None)
Quarter: 2009Q3

REPORT INFORMATION
  Report Type: 
  Country: None (occurrence: None)
  Receive Date: 20090804
  Receipt Date: 20090723
  Transmission Date: 20100115
  Serious: Yes (Hospitalization)
  Sender: FDA-Public Use
  Company Number: ES-RANBAXY-2009RR-25927

PATIENT
  Age: 32 Year
  Sex: Male

DRUGS (1)
  1. CETIRIZINE [Suspect]
     Indication: RHINITIS ALLERGIC
     Dosage: 10 MG, QD

REACTIONS (1)
  - CHOLESTASIS [None]
